FAERS Safety Report 5338769-4 (Version None)
Quarter: 2007Q2

REPORT INFORMATION
  Report Type: 
  Country: None (occurrence: None)
  Receive Date: 20070328
  Receipt Date: 20070118
  Transmission Date: 20071010
  Serious: No
  Sender: FDA-Public Use
  Company Number: 13584123

PATIENT
  Age: 40 Year
  Sex: Female

DRUGS (2)
  1. EMSAM [Suspect]
     Dosage: 6 MILLIGRAM, 24 HOUR TD
  2. AMBIEN [Concomitant]

REACTIONS (1)
  - RASH MACULO-PAPULAR [None]
